FAERS Safety Report 6962655-7 (Version None)
Quarter: 2010Q3

REPORT INFORMATION
  Report Type: 
  Country: None (occurrence: None)
  Receive Date: 20100831
  Receipt Date: 20100820
  Transmission Date: 20110219
  Serious: Yes (Other)
  Sender: FDA-Public Use
  Company Number: 2010US002832

PATIENT
  Sex: Female

DRUGS (24)
  1. VIBATIV [Suspect]
     Indication: OSTEOMYELITIS
     Dosage: 10 MG/KG, UNKNOWN/D, IV NOS
     Route: 042
     Dates: start: 20100531, end: 20100629
  2. ACETAZOLAMIDE [Concomitant]
  3. IPRATROPIUM BROMIDE [Concomitant]
  4. NORVASC [Concomitant]
  5. LUMIGAN [Concomitant]
  6. TIMOLOL MALEATE [Concomitant]
  7. CATAPRES [Concomitant]
  8. CUBICIN [Concomitant]
  9. COLACE (DOCUSATE SODIUM) [Concomitant]
  10. PROCRIT [Concomitant]
  11. FERROUS SULFATE TAB [Concomitant]
  12. LASIX [Concomitant]
  13. HYDROCHLOROTHIAZIDE [Concomitant]
  14. ZAROXOLYN [Concomitant]
  15. NOVOLIN (INSULIN ISOPHANE, HUMAN BIOSYNTHETIC) [Concomitant]
  16. NYSTATIN [Concomitant]
  17. DIOVAN [Concomitant]
  18. RENAGEL [Concomitant]
  19. METAMUCIL-2 [Concomitant]
  20. PRED FORTE [Concomitant]
  21. PROTONIX [Concomitant]
  22. ACETAMINOPHEN [Concomitant]
  23. ATIVAN [Concomitant]
  24. HALDOL (HALOPERIDOL LACTATE) [Concomitant]

REACTIONS (3)
  - ABDOMINAL PAIN [None]
  - BACK PAIN [None]
  - HEPATIC ENZYME INCREASED [None]
